FAERS Safety Report 7077849-2 (Version None)
Quarter: 2010Q4

REPORT INFORMATION
  Report Type: 
  Country: None (occurrence: None)
  Receive Date: 20101101
  Receipt Date: 20101022
  Transmission Date: 20110411
  Serious: Yes (Other)
  Sender: FDA-Public Use
  Company Number: HR-ABBOTT-10P-216-0680705-00

PATIENT
  Sex: Female

DRUGS (2)
  1. HUMIRA [Suspect]
     Indication: CROHN'S DISEASE
     Dates: end: 20100801
  2. HUMIRA [Suspect]
     Dates: start: 20100801, end: 20101001

REACTIONS (2)
  - DRUG INEFFECTIVE [None]
  - FISTULA [None]
